FAERS Safety Report 12304275 (Version 1)
Quarter: 2016Q2

REPORT INFORMATION
  Report Type: Spontaneous
  Country: US (occurrence: US)
  Receive Date: 20160426
  Receipt Date: 20160426
  Transmission Date: 20160815
  Serious: No
  Sender: FDA-Public Use
  Company Number: US-JNJFOC-20160403495

PATIENT
  Age: 11 Year
  Sex: Male
  Weight: 45.36 kg

DRUGS (5)
  1. CONCERTA [Suspect]
     Active Substance: METHYLPHENIDATE HYDROCHLORIDE
     Indication: ATTENTION DEFICIT/HYPERACTIVITY DISORDER
     Route: 048
     Dates: start: 2015, end: 2015
  2. CONCERTA [Suspect]
     Active Substance: METHYLPHENIDATE HYDROCHLORIDE
     Indication: ATTENTION DEFICIT/HYPERACTIVITY DISORDER
     Route: 048
     Dates: start: 2015, end: 20160330
  3. CONCERTA [Suspect]
     Active Substance: METHYLPHENIDATE HYDROCHLORIDE
     Indication: ATTENTION DEFICIT/HYPERACTIVITY DISORDER
     Route: 048
     Dates: start: 2012, end: 2015
  4. RITALIN [Concomitant]
     Active Substance: METHYLPHENIDATE HYDROCHLORIDE
     Indication: SUPPLEMENTATION THERAPY
     Route: 065
     Dates: start: 2013
  5. GUANFACINE. [Concomitant]
     Active Substance: GUANFACINE
     Indication: SUPPLEMENTATION THERAPY
     Route: 065
     Dates: start: 2015

REACTIONS (4)
  - Therapeutic response decreased [Unknown]
  - Thinking abnormal [Recovered/Resolved]
  - Weight decreased [Recovered/Resolved]
  - Emotional disorder [Recovered/Resolved]

NARRATIVE: CASE EVENT DATE: 2015
